FAERS Safety Report 7226694-3 (Version None)
Quarter: 2011Q1

REPORT INFORMATION
  Report Type: 
  Country: None (occurrence: None)
  Receive Date: 20110114
  Receipt Date: 20110113
  Transmission Date: 20110831
  Serious: Yes (Hospitalization)
  Sender: FDA-Public Use
  Company Number: ES-BRISTOL-MYERS SQUIBB COMPANY-15483522

PATIENT
  Age: 27 Year
  Sex: Female

DRUGS (1)
  1. MAXIPIME [Suspect]
     Indication: INFECTION
     Dosage: 2G POWDER IV SOLUTION (6 G 3TIMES DAILY).
     Route: 042
     Dates: start: 20100101, end: 20101220

REACTIONS (2)
  - INFECTION [None]
  - DRUG ADMINISTRATION ERROR [None]
